FAERS Safety Report 19866510 (Version 2)
Quarter: 2021Q4

REPORT INFORMATION
  Report Type: Report from Study
  Country: US (occurrence: US)
  Receive Date: 20210922
  Receipt Date: 20211029
  Transmission Date: 20220304
  Serious: Yes (Hospitalization)
  Sender: FDA-Public Use
  Company Number: NVSC2021US210869

PATIENT
  Age: 31 Year
  Sex: Male
  Weight: 90.7 kg

DRUGS (4)
  1. TREPROSTINIL [Suspect]
     Active Substance: TREPROSTINIL
     Indication: Pulmonary arterial hypertension
     Dosage: 91 NG/KG/MIN
     Route: 042
     Dates: start: 20190207
  2. TREPROSTINIL [Suspect]
     Active Substance: TREPROSTINIL
     Dosage: 91 NG/KG/MIN, CONT
     Route: 042
     Dates: start: 20190702
  3. AMBRISENTAN [Concomitant]
     Active Substance: AMBRISENTAN
     Indication: Product used for unknown indication
     Dosage: UNK
     Route: 065
  4. TADALAFIL [Concomitant]
     Active Substance: TADALAFIL
     Indication: Product used for unknown indication
     Dosage: UNK
     Route: 065

REACTIONS (4)
  - Internal haemorrhage [Unknown]
  - Infection [Unknown]
  - Bronchitis [Unknown]
  - Chest pain [Unknown]

NARRATIVE: CASE EVENT DATE: 20210822
